FAERS Safety Report 4282434-1 (Version None)
Quarter: 2004Q1

REPORT INFORMATION
  Report Type: 
  Country: None (occurrence: None)
  Receive Date: 20040129
  Receipt Date: 20040119
  Transmission Date: 20041129
  Serious: Yes (Death, Life-Threatening)
  Sender: FDA-Public Use
  Company Number: FRWYE515719JAN04

PATIENT
  Age: 64 Year
  Sex: Male

DRUGS (6)
  1. BISOPROLOL FUMARATE [Suspect]
     Indication: ATRIAL FIBRILLATION
     Dosage: 5 MG, 1X PER 1 DAY, ORAL
     Route: 048
     Dates: start: 20031006
  2. ANTINEOPLASTIC AGENTS (ANTINEOPLASTIC AGENTS, 0) [Suspect]
     Indication: BRONCHIAL CARCINOMA
     Dosage: 250 MG 1X PER 1 DAY, ORAL
     Route: 048
     Dates: start: 20031110, end: 20031201
  3. CISPLATIN [Suspect]
     Indication: BRONCHIAL CARCINOMA
     Dosage: 100 MG/M^2 1X PER 1 WK, INTRAVENOUS
     Route: 042
     Dates: start: 20030401, end: 20030512
  4. CORDARONE [Suspect]
     Indication: ATRIAL FIBRILLATION
     Dosage: 300 MG 1X PER  1 DAY, ORAL
     Route: 048
     Dates: start: 20031006
  5. GEMZAR [Suspect]
     Indication: BRONCHIAL CARCINOMA
     Dosage: 1250 MG/M^2 1X PER 1 WK, INTRAVENOUS
     Route: 042
     Dates: start: 20030401, end: 20030512
  6. KARDEGIC (ACETYLSALICYLAET LYSINE, 0) [Suspect]
     Indication: ATRIAL FIBRILLATION
     Dosage: 160 MG 1X PER 1 DAY,ORAL
     Route: 048
     Dates: start: 20031006

REACTIONS (3)
  - ACNE [None]
  - CARDIO-RESPIRATORY ARREST [None]
  - PULMONARY EMBOLISM [None]
